FAERS Safety Report 7302300-4 (Version None)
Quarter: 2011Q1

REPORT INFORMATION
  Report Type: 
  Country: None (occurrence: None)
  Receive Date: 20110218
  Receipt Date: 20110211
  Transmission Date: 20110831
  Serious: Yes (Other)
  Sender: FDA-Public Use
  Company Number: FR-PFIZER INC-2010115315

PATIENT
  Age: 80 Year
  Sex: Female

DRUGS (18)
  1. TARGOCID [Suspect]
     Dosage: 400 MG, DAILY
     Route: 042
     Dates: start: 20100422, end: 20100511
  2. LOVENOX [Suspect]
     Dosage: 1 DF, 1X/DAY
     Route: 058
     Dates: start: 20100505, end: 20100512
  3. ORBENINE [Suspect]
     Indication: STAPHYLOCOCCAL INFECTION
  4. ZELITREX [Concomitant]
     Dosage: 2 DF, 1X/DAY
     Route: 048
     Dates: start: 20100424, end: 20100505
  5. FOSINOPRIL SODIUM AND HYDROCHLOROTHIAZIDE [Concomitant]
     Indication: HYPERTENSION
     Dosage: UNK
     Route: 048
     Dates: end: 20100321
  6. RIFADIN [Suspect]
     Indication: STAPHYLOCOCCAL INFECTION
     Dosage: 2 DF, UNK
     Route: 042
     Dates: start: 20100402, end: 20100512
  7. STILNOX [Concomitant]
     Route: 048
  8. LANTUS [Concomitant]
     Dosage: UNK
     Route: 058
     Dates: start: 20100321
  9. INIPOMP [Suspect]
     Dosage: 40 MG, 1X/DAY
     Route: 048
     Dates: start: 20100321, end: 20100512
  10. TARGOCID [Suspect]
     Indication: ENDOCARDITIS
     Dosage: 600 MG, DAILY
     Route: 042
     Dates: start: 20100322, end: 20100402
  11. LASIX [Suspect]
     Dosage: 20MG/2ML, 2DF XDAY
     Route: 042
     Dates: start: 20100321, end: 20100512
  12. AMLOR [Suspect]
     Dosage: UNK
     Route: 048
     Dates: end: 20100510
  13. CARDENSIEL [Suspect]
     Route: 048
  14. TEMESTA [Concomitant]
     Route: 048
  15. ELIDIUR [Concomitant]
     Dosage: UNK
     Route: 048
     Dates: start: 20100321
  16. COVERSYL [Suspect]
     Dosage: 8 MG, 1X/DAY
     Route: 048
     Dates: start: 20100422, end: 20100512
  17. HEPARIN SODIUM [Concomitant]
     Dosage: 16000 IU, 1X/DAY
     Route: 042
     Dates: start: 20100419, end: 20100422
  18. ASPIRIN [Concomitant]
     Route: 048

REACTIONS (2)
  - INTERSTITIAL LUNG DISEASE [None]
  - RENAL FAILURE ACUTE [None]
